FAERS Safety Report 5079319-X (Version None)
Quarter: 2006Q3

REPORT INFORMATION
  Report Type: 
  Country: None (occurrence: None)
  Receive Date: 20060809
  Receipt Date: 20060727
  Transmission Date: 20061208
  Serious: Yes (Hospitalization, Other)
  Sender: FDA-Public Use
  Company Number: 2006025350

PATIENT
  Age: 59 Year
  Sex: Female
  Weight: 99.3377 kg

DRUGS (5)
  1. ZYVOX [Suspect]
     Indication: ILL-DEFINED DISORDER
     Dates: start: 20051122, end: 20051221
  2. PROCRIT [Suspect]
     Indication: NEPHROGENIC ANAEMIA
     Dosage: 10000 I.U. (2 IN 1 WK), SUBUCTANEOUS - SEE IMAGE
     Route: 058
     Dates: start: 20050328
  3. PROCRIT [Suspect]
     Indication: NEPHROGENIC ANAEMIA
     Dosage: 10000 I.U. (2 IN 1 WK), SUBUCTANEOUS - SEE IMAGE
     Route: 058
     Dates: start: 20050501
  4. PROCRIT [Suspect]
     Indication: NEPHROGENIC ANAEMIA
     Dosage: 10000 I.U. (2 IN 1 WK), SUBUCTANEOUS - SEE IMAGE
     Route: 058
     Dates: start: 20050501
  5. SULFAMETHOXAZOLE + TRIMETHOPRIM [Suspect]
     Indication: ILL-DEFINED DISORDER
     Dates: start: 20051124, end: 20051205

REACTIONS (5)
  - APLASIA PURE RED CELL [None]
  - DIABETIC FOOT INFECTION [None]
  - DRUG INEFFECTIVE [None]
  - FOLATE DEFICIENCY [None]
  - RENAL FAILURE [None]
